FAERS Safety Report 20361176 (Version 1)
Quarter: 2022Q1

REPORT INFORMATION
  Report Type: Spontaneous
  Country: US (occurrence: None)
  Receive Date: 20220120
  Receipt Date: 20220120
  Transmission Date: 20220424
  Serious: Yes (Other)
  Sender: FDA-Public Use
  Company Number: None

PATIENT
  Age: 7 Week
  Sex: Female
  Weight: 3.9 kg

DRUGS (23)
  1. REMDESIVIR [Suspect]
     Active Substance: REMDESIVIR
     Indication: COVID-19 pneumonia
     Dosage: FREQUENCY : ONCE;?
     Route: 042
     Dates: start: 20220110, end: 20220111
  2. REMDESIVIR [Suspect]
     Active Substance: REMDESIVIR
     Indication: COVID-19 pneumonia
     Dosage: FREQUENCY : DAILY;?
     Route: 042
     Dates: start: 20220112, end: 20220112
  3. MEROPENEM [Concomitant]
     Active Substance: MEROPENEM
     Dates: start: 20220112
  4. MICAFUNGIN [Concomitant]
     Active Substance: MICAFUNGIN
     Dates: start: 20220112
  5. CEFEPIME [Concomitant]
     Active Substance: CEFEPIME HYDROCHLORIDE
     Dates: start: 20220111, end: 20220111
  6. Epinephrine Drip 10mg [Concomitant]
     Dates: start: 20220111
  7. Dopamine Drip 32mg [Concomitant]
     Dates: start: 20220111
  8. LASIX [Concomitant]
     Active Substance: FUROSEMIDE
     Dates: start: 20220111, end: 20220111
  9. VECURONIUM [Concomitant]
     Active Substance: VECURONIUM BROMIDE
     Dates: start: 20220111
  10. Dexmedetomidine titration trip  200mg [Concomitant]
     Dates: start: 20220111
  11. FENTANYL [Concomitant]
     Active Substance: FENTANYL
     Dates: start: 20220112
  12. MORPHINE [Concomitant]
     Active Substance: MORPHINE
     Dates: start: 20220111
  13. VERSED [Concomitant]
     Active Substance: MIDAZOLAM HYDROCHLORIDE
     Dates: start: 20220111
  14. ACETAMINOPHEN [Concomitant]
     Active Substance: ACETAMINOPHEN
     Dates: start: 20220110
  15. VITAMIN K [Concomitant]
     Active Substance: PHYTONADIONE
     Dates: start: 20220112
  16. ENOXAPARIN [Concomitant]
     Active Substance: ENOXAPARIN
     Dates: start: 20220110
  17. PEPCID [Concomitant]
     Active Substance: FAMOTIDINE
     Dates: start: 20220112
  18. OMEPRAZOLE [Concomitant]
     Active Substance: OMEPRAZOLE
     Dates: start: 20220110
  19. METHYLPREDNISOLONE [Concomitant]
     Active Substance: METHYLPREDNISOLONE
     Dates: start: 20220111
  20. HYDROCORTISONE [Concomitant]
     Active Substance: HYDROCORTISONE
     Dates: start: 20220111
  21. Vassopressor Drip 10 units [Concomitant]
     Dates: start: 20220111
  22. DEXAMETHASONE [Concomitant]
     Active Substance: DEXAMETHASONE
     Dates: start: 20220112
  23. Filgrastamin-sndz [Concomitant]
     Dates: start: 20220112

REACTIONS (3)
  - Aspartate aminotransferase increased [None]
  - Alanine aminotransferase increased [None]
  - Hepatic enzyme increased [None]

NARRATIVE: CASE EVENT DATE: 20220112
